FAERS Safety Report 8220186-0 (Version None)
Quarter: 2012Q1

REPORT INFORMATION
  Report Type: 
  Country: None (occurrence: None)
  Receive Date: 20120320
  Receipt Date: 20120316
  Transmission Date: 20120608
  Serious: Yes (Other)
  Sender: FDA-Public Use
  Company Number: DE-BAYER-2012-026278

PATIENT
  Sex: Male

DRUGS (1)
  1. BETASERON [Suspect]

REACTIONS (1)
  - NECROSIS [None]
